FAERS Safety Report 7896165-X (Version None)
Quarter: 2011Q4

REPORT INFORMATION
  Report Type: 
  Country: None (occurrence: None)
  Receive Date: 20111106
  Receipt Date: 20110906
  Transmission Date: 20120403
  Serious: No
  Sender: FDA-Public Use
  Company Number: US-AMGEN-USASP2011034996

PATIENT
  Age: 62 Year
  Sex: Female

DRUGS (4)
  1. NSAID'S [Concomitant]
  2. MOBIC [Concomitant]
  3. ENBREL [Suspect]
     Indication: PSORIATIC ARTHROPATHY
     Dosage: 50 MG, QWK
     Dates: start: 20110615
  4. ENBREL [Suspect]
     Dosage: 50 MG, QWK

REACTIONS (12)
  - DECREASED APPETITE [None]
  - INJECTION SITE REACTION [None]
  - INJECTION SITE PRURITUS [None]
  - ABDOMINAL PAIN UPPER [None]
  - ABDOMINAL PAIN [None]
  - INJECTION SITE PAIN [None]
  - DRUG INEFFECTIVE [None]
  - PAIN [None]
  - INJECTION SITE ERYTHEMA [None]
  - INJECTION SITE WARMTH [None]
  - NAUSEA [None]
  - ABDOMINAL DISTENSION [None]
